FAERS Safety Report 5259346-X (Version None)
Quarter: 2007Q1

REPORT INFORMATION
  Report Type: 
  Country: None (occurrence: None)
  Receive Date: 20070302
  Receipt Date: 20060808
  Transmission Date: 20070707
  Serious: Yes (Life-Threatening)
  Sender: FDA-Public Use
  Company Number: DSA_29405_2007

PATIENT
  Age: 68 Year
  Sex: Female

DRUGS (6)
  1. UNI MASDIL [Suspect]
     Indication: ACUTE MYOCARDIAL INFARCTION
     Dosage: 180 MG QD PO A FEW YEARS
     Route: 048
  2. ISCOVER [Suspect]
     Dosage: 75 MG QD PO
     Route: 048
     Dates: start: 20060503
  3. ASPIRIN [Suspect]
     Dosage: 100 MG QD PO
     Route: 048
     Dates: start: 20060503
  4. SIMVASTATIN [Concomitant]
  5. PRITOR [Concomitant]
  6. PULMICORT RESPULES [Concomitant]

REACTIONS (4)
  - DRUG INTERACTION [None]
  - GASTROINTESTINAL HAEMORRHAGE [None]
  - GASTROINTESTINAL STROMAL TUMOUR [None]
  - HAEMATOCRIT DECREASED [None]
